FAERS Safety Report 7815689-4 (Version None)
Quarter: 2011Q4

REPORT INFORMATION
  Report Type: 
  Country: None (occurrence: None)
  Receive Date: 20111014
  Receipt Date: 20111003
  Transmission Date: 20120403
  Serious: Yes (Other)
  Sender: FDA-Public Use
  Company Number: PHHY2011BR88537

PATIENT
  Age: 53 Year
  Sex: Female

DRUGS (11)
  1. AMLODIPINE [Concomitant]
  2. CLONAZEPAM [Concomitant]
     Dosage: 0.5 MG, AT NIGHT
  3. ANGIOTENSIN II ANTAGONISTS [Concomitant]
  4. DIOVAN HCT [Concomitant]
  5. ATENOLOL [Concomitant]
     Dosage: 25 MG, UNK
  6. DICLOFENAC SODIUM [Suspect]
  7. EXFORGE HCT [Concomitant]
  8. THIAZIDE DERIVATIVES [Concomitant]
  9. METHYLDOPA [Concomitant]
  10. ASPIRIN [Concomitant]
  11. FENOTEROL [Concomitant]

REACTIONS (9)
  - MYOCARDIAL ISCHAEMIA [None]
  - FATIGUE [None]
  - HYPERTENSION [None]
  - HEADACHE [None]
  - LOW DENSITY LIPOPROTEIN INCREASED [None]
  - WHEEZING [None]
  - HAEMATOCRIT DECREASED [None]
  - DYSPNOEA [None]
  - BLOOD CHOLESTEROL INCREASED [None]
